FAERS Safety Report 12345402 (Version 1)
Quarter: 2016Q2

REPORT INFORMATION
  Report Type: Spontaneous
  Country: CA (occurrence: CA)
  Receive Date: 20160508
  Receipt Date: 20160508
  Transmission Date: 20160815
  Serious: No
  Sender: FDA-Public Use
  Company Number: CA-AMGEN-CANSP2016056813

PATIENT
  Sex: Female

DRUGS (1)
  1. PROLIA [Suspect]
     Active Substance: DENOSUMAB
     Indication: OSTEOPOROSIS
     Dosage: UNK
     Route: 065
     Dates: start: 201511

REACTIONS (12)
  - Loose tooth [Unknown]
  - Cough [Not Recovered/Not Resolved]
  - Paraesthesia [Unknown]
  - Blepharitis [Not Recovered/Not Resolved]
  - Toothache [Unknown]
  - Back pain [Not Recovered/Not Resolved]
  - Arthralgia [Unknown]
  - Rash [Unknown]
  - Arthritis [Unknown]
  - Neuralgia [Recovered/Resolved]
  - Pelvic pain [Unknown]
  - Osteopenia [Unknown]

NARRATIVE: CASE EVENT DATE: 201511
